FAERS Safety Report 5758833-5 (Version None)
Quarter: 2008Q2

REPORT INFORMATION
  Report Type: 
  Country: None (occurrence: None)
  Receive Date: 20080604
  Receipt Date: 20080527
  Transmission Date: 20081010
  Serious: Yes (Hospitalization, Disabling)
  Sender: FDA-Public Use
  Company Number: FR-ASTRAZENECA-2008CG00517

PATIENT
  Age: 15 Year
  Sex: Female

DRUGS (2)
  1. MOPRAL [Suspect]
     Indication: HIATUS HERNIA
     Route: 048
     Dates: start: 20040101, end: 20080409
  2. REVAXIS [Suspect]
     Dates: start: 20071105, end: 20071105

REACTIONS (8)
  - ARTHRALGIA [None]
  - BACK PAIN [None]
  - EXOPHTHALMOS [None]
  - FATIGUE [None]
  - HEADACHE [None]
  - IMMUNODEFICIENCY [None]
  - MUSCULOSKELETAL STIFFNESS [None]
  - VOMITING [None]
